FAERS Safety Report 9702061 (Version 2)
Quarter: 2014Q1

REPORT INFORMATION
  Report Type: Spontaneous
  Country: US (occurrence: None)
  Receive Date: 20131120
  Receipt Date: 20140304
  Transmission Date: 20141002
  Serious: Yes (Other)
  Sender: FDA-Public Use
  Company Number: 2013-US-003075

PATIENT
  Age: 42 Year
  Sex: Female
  Weight: 69 kg

DRUGS (4)
  1. XYREM [Suspect]
     Indication: APNOEA
     Route: 048
     Dates: start: 200602, end: 2006
  2. RISPERDAL [Concomitant]
  3. WELLBUTRIN (BUPROPION HYDROCHLORIDE) [Concomitant]
  4. TOPAMAX (TOPIRAMATE) [Concomitant]

REACTIONS (4)
  - Mass [None]
  - Thymoma [None]
  - Fibromyalgia [None]
  - Off label use [None]
